FAERS Safety Report 5905742-4 (Version None)
Quarter: 2008Q4

REPORT INFORMATION
  Report Type: 
  Country: None (occurrence: None)
  Receive Date: 20081002
  Receipt Date: 20080923
  Transmission Date: 20090506
  Serious: Yes (Other)
  Sender: FDA-Public Use
  Company Number: BE-ASTRAZENECA-2008AC02501

PATIENT
  Age: 26698 Day
  Sex: Female
  Weight: 73 kg

DRUGS (4)
  1. CRESTOR [Suspect]
     Indication: HYPERCHOLESTEROLAEMIA
     Dosage: 10 MG
     Route: 048
     Dates: start: 20071106, end: 20080826
  2. DILTIAZEM HCL [Concomitant]
     Indication: HYPERTENSION
     Dosage: 300MG
     Route: 048
     Dates: start: 20000101
  3. ASAFLOW [Concomitant]
     Indication: CARDIAC DISORDER
     Route: 048
     Dates: start: 20050101
  4. UTROGESTAN [Concomitant]
     Indication: MENOPAUSE
     Dosage: 10 DAY/MONTH
     Route: 048
     Dates: start: 19950101

REACTIONS (2)
  - HOT FLUSH [None]
  - HYPERHIDROSIS [None]
